FAERS Safety Report 9684615 (Version 1)
Quarter: 2013Q4

REPORT INFORMATION
  Report Type: Spontaneous
  Country: HR (occurrence: HR)
  Receive Date: 20131112
  Receipt Date: 20131112
  Transmission Date: 20140711
  Serious: Yes (Hospitalization)
  Sender: FDA-Public Use
  Company Number: PHHY2013HR126588

PATIENT
  Age: 54 Year
  Sex: Male

DRUGS (3)
  1. TACROLIMUS [Suspect]
     Indication: RENAL TRANSPLANT
     Dosage: 0.07 MG/KG, QD
  2. MYCOPHENOLATE SODIUM [Concomitant]
     Indication: RENAL TRANSPLANT
  3. BASILIXIMAB [Concomitant]
     Indication: RENAL TRANSPLANT

REACTIONS (3)
  - Hepatotoxicity [Recovered/Resolved]
  - Hepatic failure [Recovered/Resolved]
  - Complications of transplanted kidney [Unknown]
